FAERS Safety Report 12422958 (Version 1)
Quarter: 2016Q2

REPORT INFORMATION
  Report Type: Spontaneous
  Country: US (occurrence: None)
  Receive Date: 20160531
  Receipt Date: 20160531
  Transmission Date: 20160815
  Serious: Yes (Disabling)
  Sender: FDA-Public Use
  Company Number: None

PATIENT
  Age: 66 Year
  Sex: Female
  Weight: 77.11 kg

DRUGS (14)
  1. EQUATE CIMETIDINE [Suspect]
     Active Substance: CIMETIDINE
     Indication: GASTRIC PH DECREASED
     Route: 048
     Dates: start: 20160529, end: 20160530
  2. FERROUS SULFATE. [Concomitant]
     Active Substance: FERROUS SULFATE
  3. FISH OIL [Concomitant]
     Active Substance: FISH OIL
  4. FUROSEMIDE. [Concomitant]
     Active Substance: FUROSEMIDE
  5. ESTRADIOL. [Concomitant]
     Active Substance: ESTRADIOL
  6. METOPROLOL. [Concomitant]
     Active Substance: METOPROLOL
  7. POTASSIUM CL [Concomitant]
     Active Substance: POTASSIUM CHLORIDE
  8. CALCIUM/MAGNESIUM/ZINC [Concomitant]
  9. MULTI-VITAMIN [Concomitant]
     Active Substance: .ALPHA.-TOCOPHEROL ACETATE, DL-\ASCORBIC ACID\CYANOCOBALAMIN\FLUORIDE ION\FOLIC ACID\NIACIN\PYRIDOXINE\RIBOFLAVIN\THIAMINE\VITAMIN A\VITAMIN D
  10. VITAMIN D3 [Concomitant]
     Active Substance: CHOLECALCIFEROL
  11. FLUTICASONE [Concomitant]
     Active Substance: FLUTICASONE\FLUTICASONE PROPIONATE
  12. LORAZEPAM. [Concomitant]
     Active Substance: LORAZEPAM
  13. VITAMIN E [Concomitant]
     Active Substance: .ALPHA.-TOCOPHEROL
  14. OMEPRAZOLE. [Concomitant]
     Active Substance: OMEPRAZOLE

REACTIONS (3)
  - Skin discolouration [None]
  - Urticaria [None]
  - Rash [None]

NARRATIVE: CASE EVENT DATE: 20160529
